FAERS Safety Report 9110531 (Version 1)
Quarter: 2013Q1

REPORT INFORMATION
  Report Type: Spontaneous
  Country: US (occurrence: US)
  Receive Date: 20130221
  Receipt Date: 20130221
  Transmission Date: 20140127
  Serious: No
  Sender: FDA-Public Use
  Company Number: US-BRACCO-007921

PATIENT
  Sex: 0

DRUGS (1)
  1. CHOLETEC [Suspect]
     Indication: DIAGNOSTIC PROCEDURE

REACTIONS (2)
  - Drug ineffective [Unknown]
  - Product measured potency issue [Unknown]
